FAERS Safety Report 4742624-8 (Version None)
Quarter: 2005Q3

REPORT INFORMATION
  Report Type: 
  Country: None (occurrence: None)
  Receive Date: 20050808
  Receipt Date: 20050725
  Transmission Date: 20060218
  Serious: Yes (Other)
  Sender: FDA-Public Use
  Company Number: USA0507103706

PATIENT
  Age: 87 Year
  Sex: Female

DRUGS (2)
  1. FORTEO [Suspect]
     Dates: start: 20040801, end: 20050115
  2. MULTI-VITAMINS [Concomitant]

REACTIONS (11)
  - ASTHENIA [None]
  - BLOOD CALCIUM INCREASED [None]
  - DRUG DOSE OMISSION [None]
  - FALL [None]
  - HYPERGLYCAEMIA [None]
  - PAIN [None]
  - PELVIC NEOPLASM [None]
  - REFUSAL OF TREATMENT BY PATIENT [None]
  - TREATMENT NONCOMPLIANCE [None]
  - VERTIGO [None]
  - WALKING AID USER [None]
